FAERS Safety Report 6443292-X (Version None)
Quarter: 2009Q4

REPORT INFORMATION
  Report Type: 
  Country: None (occurrence: None)
  Receive Date: 20091117
  Receipt Date: 20091112
  Transmission Date: 20100525
  Serious: Yes (Hospitalization)
  Sender: FDA-Public Use
  Company Number: US-JNJFOC-20091103959

PATIENT
  Age: 82 Year
  Sex: Male

DRUGS (1)
  1. AMRIX [Suspect]
     Indication: JOINT INJURY

REACTIONS (1)
  - DELIRIUM [None]
